FAERS Safety Report 6342274-6 (Version None)
Quarter: 2009Q3

REPORT INFORMATION
  Report Type: 
  Country: None (occurrence: None)
  Receive Date: 20090907
  Receipt Date: 20090828
  Transmission Date: 20100115
  Serious: Yes (Hospitalization, Other)
  Sender: FDA-Public Use
  Company Number: US-BIOGENIDEC-2009BI027581

PATIENT
  Age: 45 Year
  Sex: Female
  Weight: 58 kg

DRUGS (5)
  1. AVONEX [Suspect]
     Indication: MULTIPLE SCLEROSIS
     Route: 030
     Dates: start: 20000501, end: 20030801
  2. AVONEX [Suspect]
     Route: 030
     Dates: start: 20030801
  3. PROVIGIL [Concomitant]
     Indication: FATIGUE
     Route: 048
  4. CONCERTA [Concomitant]
     Indication: FATIGUE
     Route: 048
  5. VICODIN [Concomitant]
     Indication: BACK PAIN
     Route: 048

REACTIONS (15)
  - APHASIA [None]
  - CEREBROVASCULAR ACCIDENT [None]
  - DEPRESSION [None]
  - DROOLING [None]
  - ELECTROENCEPHALOGRAM ABNORMAL [None]
  - FEELING ABNORMAL [None]
  - FIBROMYALGIA [None]
  - GENERAL SYMPTOM [None]
  - HYPOAESTHESIA [None]
  - MEMORY IMPAIRMENT [None]
  - MULTIPLE SCLEROSIS [None]
  - PAIN IN EXTREMITY [None]
  - PARAESTHESIA [None]
  - PLANTAR FASCIITIS [None]
  - SPEECH DISORDER [None]
